FAERS Safety Report 10618706 (Version 2)
Quarter: 2014Q4

REPORT INFORMATION
  Report Type: Spontaneous
  Country: DE (occurrence: DE)
  Receive Date: 20141202
  Receipt Date: 20141216
  Transmission Date: 20150529
  Serious: Yes (Death, Hospitalization, Other)
  Sender: FDA-Public Use
  Company Number: DE-SA-2014SA163342

PATIENT
  Sex: Male
  Weight: 84 kg

DRUGS (9)
  1. CALCIUM [Concomitant]
     Active Substance: CALCIUM
     Indication: OSTEOPOROSIS
     Route: 048
  2. PROPANOLOL [Concomitant]
     Active Substance: PROPRANOLOL HYDROCHLORIDE
  3. OMEP [Concomitant]
     Active Substance: OMEPRAZOLE
  4. DOCITON [Concomitant]
     Active Substance: PROPRANOLOL HYDROCHLORIDE
     Indication: VARICES OESOPHAGEAL
     Route: 048
  5. CEREZYME [Suspect]
     Active Substance: IMIGLUCERASE
     Indication: GAUCHER^S DISEASE
     Route: 041
     Dates: start: 20020905, end: 20141016
  6. OSYROL [Concomitant]
  7. LEVEMIR [Concomitant]
     Active Substance: INSULIN DETEMIR
     Indication: DIABETES MELLITUS
     Route: 058
  8. INSUMAN RAPID [Concomitant]
     Active Substance: INSULIN HUMAN
     Indication: DIABETES MELLITUS
     Route: 058
  9. METFORMIN [Concomitant]
     Active Substance: METFORMIN HYDROCHLORIDE
     Indication: DIABETES MELLITUS
     Route: 048

REACTIONS (29)
  - Hypotension [Fatal]
  - Disturbance in attention [Fatal]
  - Anuria [Unknown]
  - Portal hypertension [Unknown]
  - Abdominal pain [Unknown]
  - Hypoperfusion [Unknown]
  - Tachyarrhythmia [Recovered/Resolved]
  - Hepatic ischaemia [Unknown]
  - Renal cyst [Unknown]
  - Osteonecrosis [Unknown]
  - Somnolence [Fatal]
  - Pancytopenia [Unknown]
  - Renal colic [Unknown]
  - Renal failure [Unknown]
  - Varices oesophageal [Unknown]
  - Faeces discoloured [Unknown]
  - Condition aggravated [Fatal]
  - Metabolic acidosis [Unknown]
  - Hepatic cirrhosis [Unknown]
  - Hepatocellular carcinoma [Unknown]
  - Ascites [Unknown]
  - Ventricular fibrillation [Unknown]
  - Blood potassium increased [Unknown]
  - Melaena [Unknown]
  - Pulmonary arterial pressure increased [Unknown]
  - Upper gastrointestinal haemorrhage [Unknown]
  - Acute hepatic failure [Fatal]
  - Fatigue [Fatal]
  - Splenomegaly [Unknown]

NARRATIVE: CASE EVENT DATE: 20080626
